FAERS Safety Report 4390332-8 (Version None)
Quarter: 2004Q2

REPORT INFORMATION
  Report Type: 
  Country: None (occurrence: None)
  Receive Date: 20040628
  Receipt Date: 20040615
  Transmission Date: 20050107
  Serious: Yes (Hospitalization, Other)
  Sender: FDA-Public Use
  Company Number: 2004040267

PATIENT
  Sex: Male

DRUGS (9)
  1. NEURONTIN [Suspect]
     Indication: MUSCLE SPASMS
     Dosage: ORAL
     Route: 048
     Dates: start: 20040501, end: 20040501
  2. DIAZEPAM [Suspect]
     Indication: MUSCLE SPASMS
     Dosage: 25 MG (2 IN 1 D)
     Dates: start: 20040501, end: 20040501
  3. BACLOFEN [Suspect]
     Indication: HYPOTONIA
     Dates: start: 20040501, end: 20040501
  4. ALL OTHER THERAPEUTIC PRODUCTS (ALL OTHER THERAPEUTIC PRODUCTS) [Suspect]
     Indication: SEDATION
     Dates: start: 20040501, end: 20040501
  5. OXYBUTYNIN CHLORIDE [Concomitant]
  6. WARFARIN SODIUM [Concomitant]
  7. POTASSIUM (POTASSIUM) [Concomitant]
  8. FLUTICASONE PROPIONATE [Concomitant]
  9. COMBIVENT [Concomitant]

REACTIONS (11)
  - ABDOMINAL PAIN UPPER [None]
  - ABNORMAL BEHAVIOUR [None]
  - CONDITION AGGRAVATED [None]
  - DRUG INEFFECTIVE [None]
  - DRUG INTERACTION [None]
  - DRUG WITHDRAWAL SYNDROME [None]
  - FEELING ABNORMAL [None]
  - HALLUCINATION [None]
  - MEDICATION ERROR [None]
  - MENTAL DISORDER [None]
  - PYREXIA [None]
